FAERS Safety Report 6610166-0 (Version None)
Quarter: 2010Q1

REPORT INFORMATION
  Report Type: 
  Country: None (occurrence: None)
  Receive Date: 20100302
  Receipt Date: 20100223
  Transmission Date: 20100710
  Serious: Yes (Death)
  Sender: FDA-Public Use
  Company Number: US-BRISTOL-MYERS SQUIBB COMPANY-14968663

PATIENT
  Age: 43 Year
  Sex: Male

DRUGS (21)
  1. ORENCIA [Suspect]
     Indication: RHEUMATOID ARTHRITIS
     Dosage: THERAPY DURATION 2-3MONTHS LAST DOSE:3DEC09
     Route: 042
     Dates: start: 20070101
  2. ALBUTEROL [Concomitant]
     Dosage: NEBULIZER
  3. BYSTOLIC [Concomitant]
  4. CARAFATE [Concomitant]
  5. CARISOPRODOL [Concomitant]
  6. COMBIVENT [Concomitant]
     Route: 055
  7. FENOFIBRATE [Concomitant]
  8. LORA TAB [Concomitant]
  9. LEVOTHYROXINE SODIUM [Concomitant]
  10. LISINOPRIL [Concomitant]
  11. METHADONE HCL [Concomitant]
  12. NORTRIPTYLINE HCL [Concomitant]
  13. OXYGEN [Concomitant]
  14. PHENERGAN HCL [Concomitant]
  15. PREDNISONE [Concomitant]
  16. PRILOSEC [Concomitant]
  17. PROCARDIA XL [Concomitant]
  18. SINGULAIR [Concomitant]
  19. VITAMIN D [Concomitant]
     Dosage: 1DF=50,000UNITS
  20. VOLTAREN [Concomitant]
     Dosage: GEL
  21. ZANAFLEX [Concomitant]

REACTIONS (3)
  - LIVER INJURY [None]
  - PNEUMONIA [None]
  - RENAL FAILURE ACUTE [None]
